FAERS Safety Report 7224863-X (Version None)
Quarter: 2011Q1

REPORT INFORMATION
  Report Type: 
  Country: None (occurrence: None)
  Receive Date: 20110113
  Receipt Date: 20110111
  Transmission Date: 20110831
  Serious: Yes (Death, Other)
  Sender: FDA-Public Use
  Company Number: HU-ROCHE-748855

PATIENT

DRUGS (2)
  1. INTERFERON ALFA-2A [Suspect]
     Indication: MALIGNANT MELANOMA
     Route: 058
  2. INTERFERON ALFA-2B [Suspect]
     Indication: MALIGNANT MELANOMA
     Route: 058

REACTIONS (9)
  - THYROIDITIS ACUTE [None]
  - CUTANEOUS SARCOIDOSIS [None]
  - RHABDOMYOLYSIS [None]
  - DEATH [None]
  - VITILIGO [None]
  - HYPERTHYROIDISM [None]
  - HYPOTHYROIDISM [None]
  - GOITRE [None]
  - PSORIASIS [None]
